FAERS Safety Report 7627223-2 (Version None)
Quarter: 2011Q3

REPORT INFORMATION
  Report Type: 
  Country: None (occurrence: None)
  Receive Date: 20110721
  Receipt Date: 20110707
  Transmission Date: 20111222
  Serious: Yes (Hospitalization)
  Sender: FDA-Public Use
  Company Number: PHHY2010MX67031

PATIENT
  Sex: Female

DRUGS (2)
  1. ISOSORBIDE DINITRATE [Concomitant]
  2. DIOVAN HCT [Suspect]
     Indication: HYPERTENSION
     Dosage: 1 TABLET (160/12.5 MG) DAILY
     Route: 048
     Dates: start: 20090801

REACTIONS (8)
  - ARTHRALGIA [None]
  - HEPATIC FAILURE [None]
  - GASTROENTERITIS [None]
  - PNEUMONIA [None]
  - DYSSTASIA [None]
  - LUNG NEOPLASM MALIGNANT [None]
  - RENAL FAILURE [None]
  - PLEURAL EFFUSION [None]
